FAERS Safety Report 16661891 (Version 1)
Quarter: 2019Q3

REPORT INFORMATION
  Report Type: Spontaneous
  Country: CN (occurrence: CN)
  Receive Date: 20190802
  Receipt Date: 20190802
  Transmission Date: 20191004
  Serious: Yes (Other)
  Sender: FDA-Public Use
  Company Number: CN-SA-2019SA208279

PATIENT
  Age: 59 Year
  Sex: Female
  Weight: 61 kg

DRUGS (2)
  1. OXALIPLATIN. [Suspect]
     Active Substance: OXALIPLATIN
     Indication: APPENDIX CANCER
     Dosage: 200 MG, QD
     Route: 041
     Dates: start: 20190710, end: 20190710
  2. GLUCOSE [Concomitant]
     Active Substance: DEXTROSE
     Dosage: 250 ML
     Route: 041
     Dates: start: 20190710

REACTIONS (3)
  - Dyspnoea [Recovering/Resolving]
  - Quadriplegia [Recovering/Resolving]
  - Suffocation feeling [Recovering/Resolving]

NARRATIVE: CASE EVENT DATE: 20190710
